FAERS Safety Report 7959291-2 (Version None)
Quarter: 2011Q4

REPORT INFORMATION
  Report Type: 
  Country: None (occurrence: None)
  Receive Date: 20111206
  Receipt Date: 20111202
  Transmission Date: 20120403
  Serious: Yes (Other)
  Sender: FDA-Public Use
  Company Number: FI-PFIZER INC-2011238202

PATIENT
  Age: 47 Year
  Sex: Female

DRUGS (1)
  1. VARENICLINE TARTRATE [Suspect]
     Indication: SMOKING CESSATION THERAPY
     Dosage: UNK
     Dates: start: 20110810, end: 20111001

REACTIONS (4)
  - ARRHYTHMIA [None]
  - PRURITUS [None]
  - HEART RATE DECREASED [None]
  - RASH [None]
